FAERS Safety Report 24607381 (Version 2)
Quarter: 2024Q4

REPORT INFORMATION
  Report Type: Spontaneous
  Country: US (occurrence: US)
  Receive Date: 20241112
  Receipt Date: 20241116
  Transmission Date: 20250115
  Serious: No
  Sender: ROCHE
  Company Number: US-ROCHE-10000125914

PATIENT

DRUGS (2)
  1. XOLAIR [Suspect]
     Active Substance: OMALIZUMAB
     Indication: Product used for unknown indication
     Dosage: TOTAL DOSE 375MG (ONE 75MG, ONE 300MG)
     Route: 058
     Dates: start: 202410
  2. XOLAIR [Suspect]
     Active Substance: OMALIZUMAB
     Dosage: TOTAL DOSE 375MG (ONE 75MG, ONE 300MG)
     Route: 058
     Dates: start: 202410

REACTIONS (2)
  - Wrong technique in device usage process [Unknown]
  - No adverse event [Unknown]
